FAERS Safety Report 6425090-6 (Version None)
Quarter: 2009Q4

REPORT INFORMATION
  Report Type: 
  Country: None (occurrence: None)
  Receive Date: 20091103
  Receipt Date: 20091023
  Transmission Date: 20100525
  Serious: Yes (Other)
  Sender: FDA-Public Use
  Company Number: CL-PFIZER INC-2009283106

PATIENT

DRUGS (1)
  1. GENOTONORM [Suspect]
     Indication: GROWTH RETARDATION

REACTIONS (2)
  - DRUG INEFFECTIVE [None]
  - RAYNAUD'S PHENOMENON [None]
